FAERS Safety Report 4568599-2 (Version None)
Quarter: 2005Q1

REPORT INFORMATION
  Report Type: 
  Country: None (occurrence: None)
  Receive Date: 20050202
  Receipt Date: 20050121
  Transmission Date: 20050727
  Serious: Yes (Hospitalization, Other)
  Sender: FDA-Public Use
  Company Number: US-ABBOTT-05P-163-0287973-00

PATIENT
  Sex: Male

DRUGS (3)
  1. RITONAVIR SOFT GELATIN CAPSULES [Suspect]
     Indication: HIV INFECTION
     Route: 048
     Dates: start: 20041025, end: 20041130
  2. FOSAMPRENAVIR TABLET [Suspect]
     Indication: HIV INFECTION
     Route: 048
     Dates: start: 20041025, end: 20041130
  3. EPZICOM [Suspect]
     Indication: HIV INFECTION
     Route: 048
     Dates: start: 20041025, end: 20041130

REACTIONS (9)
  - ANAEMIA [None]
  - ARTHRALGIA [None]
  - CONDITION AGGRAVATED [None]
  - DIARRHOEA [None]
  - IMMUNE RECONSTITUTION SYNDROME [None]
  - INFLUENZA [None]
  - KAPOSI'S SARCOMA [None]
  - PNEUMONIA [None]
  - VOMITING [None]
